FAERS Safety Report 12192498 (Version 1)
Quarter: 2016Q1

REPORT INFORMATION
  Report Type: Spontaneous
  Country: US (occurrence: US)
  Receive Date: 20160318
  Receipt Date: 20160318
  Transmission Date: 20160526
  Serious: Yes (Other)
  Sender: FDA-Public Use
  Company Number: PHHY2016US033395

PATIENT
  Age: 37 Year
  Sex: Female

DRUGS (3)
  1. POTASSIUM CHLORIDE. [Concomitant]
     Active Substance: POTASSIUM CHLORIDE
     Indication: PRODUCT USED FOR UNKNOWN INDICATION
     Route: 042
  2. POTASSIUM CITRATE. [Concomitant]
     Active Substance: POTASSIUM CITRATE
     Indication: PRODUCT USED FOR UNKNOWN INDICATION
     Route: 048
  3. TOPIRAMATE. [Suspect]
     Active Substance: TOPIRAMATE
     Indication: HEADACHE
     Dosage: 200 MG, UNK
     Route: 065

REACTIONS (4)
  - Metabolic acidosis [Unknown]
  - Renal tubular acidosis [Unknown]
  - Hypokalaemia [Unknown]
  - Concomitant disease aggravated [Unknown]
